FAERS Safety Report 14900306 (Version 1)
Quarter: 2018Q2

REPORT INFORMATION
  Report Type: Spontaneous
  Country: US (occurrence: US)
  Receive Date: 20180516
  Receipt Date: 20180516
  Transmission Date: 20180711
  Serious: Yes (Other)
  Sender: FDA-Public Use
  Company Number: US-ELI_LILLY_AND_COMPANY-US201805004925

PATIENT
  Age: 50 Year
  Sex: Female
  Weight: 63.56 kg

DRUGS (5)
  1. PONDIMIN [Suspect]
     Active Substance: FENFLURAMINE HYDROCHLORIDE
     Indication: WEIGHT LOSS DIET
     Dosage: 40 MG, DAILY
     Route: 048
  2. IMITREX [Suspect]
     Active Substance: SUMATRIPTAN SUCCINATE
     Indication: MIGRAINE
     Dosage: UNK UNK, UNKNOWN
     Route: 065
  3. PHENTERMINE. [Suspect]
     Active Substance: PHENTERMINE
     Indication: WEIGHT LOSS DIET
     Dosage: 30 MG, DAILY
     Route: 048
  4. PROZAC [Suspect]
     Active Substance: FLUOXETINE HYDROCHLORIDE
     Indication: DEPRESSION
     Dosage: UNK, UNKNOWN
     Route: 065
  5. EFFEXOR [Suspect]
     Active Substance: VENLAFAXINE HYDROCHLORIDE
     Indication: DEPRESSION
     Dosage: UNK UNK, UNKNOWN
     Route: 065

REACTIONS (1)
  - Cardiac valve disease [Unknown]

NARRATIVE: CASE EVENT DATE: 19971024
